FAERS Safety Report 21572246 (Version 4)
Quarter: 2023Q1

REPORT INFORMATION
  Report Type: Report from Study
  Country: US (occurrence: US)
  Receive Date: 20221109
  Receipt Date: 20230330
  Transmission Date: 20230418
  Serious: Yes (Hospitalization)
  Sender: FDA-Public Use
  Company Number: US-ABBVIE-4192684

PATIENT
  Sex: Male
  Weight: 90.718 kg

DRUGS (4)
  1. IMBRUVICA [Suspect]
     Active Substance: IBRUTINIB
     Indication: Asthenia
     Dosage: LAST ADMIN DATE- 2022
     Route: 048
     Dates: start: 20220915
  2. IMBRUVICA [Suspect]
     Active Substance: IBRUTINIB
     Indication: Asthenia
     Dosage: FIRST ADMIN DATE- 2022
     Route: 048
     Dates: end: 20221203
  3. FUROSEMIDE [Concomitant]
     Active Substance: FUROSEMIDE
     Indication: Product used for unknown indication
  4. FLUCONAZOLE [Concomitant]
     Active Substance: FLUCONAZOLE
     Indication: Product used for unknown indication

REACTIONS (2)
  - Pneumonia fungal [Unknown]
  - Meningitis fungal [Unknown]
